FAERS Safety Report 11886259 (Version 3)
Quarter: 2017Q4

REPORT INFORMATION
  Report Type: Spontaneous
  Country: US (occurrence: US)
  Receive Date: 20160104
  Receipt Date: 20171020
  Transmission Date: 20180320
  Serious: Yes (Other)
  Sender: FDA-Public Use
  Company Number: ALCN2015US008015

PATIENT
  Age: 1 Month
  Sex: Female

DRUGS (1)
  1. TOBRADEX [Suspect]
     Active Substance: DEXAMETHASONE\TOBRAMYCIN
     Indication: DACRYOSTENOSIS CONGENITAL
     Dosage: 1 GTT (DEXAMETHASONE 0.1%, TOBRAMYCIN 0.3%), BID
     Route: 047

REACTIONS (3)
  - Drug administered to patient of inappropriate age [Recovered/Resolved]
  - Glaucoma [Recovered/Resolved]
  - Pupils unequal [Recovered/Resolved]
